FAERS Safety Report 14815298 (Version 1)
Quarter: 2018Q2

REPORT INFORMATION
  Report Type: Spontaneous
  Country: FR (occurrence: FR)
  Receive Date: 20180426
  Receipt Date: 20180426
  Transmission Date: 20180711
  Serious: Yes (Hospitalization)
  Sender: FDA-Public Use
  Company Number: FR-PFIZER INC-2018170646

PATIENT
  Age: 83 Year
  Sex: Male

DRUGS (16)
  1. MIDAZOLAM [Suspect]
     Active Substance: MIDAZOLAM HYDROCHLORIDE
     Indication: SEDATION
     Dosage: 12 MG, UNK (EVERY HOUR)
     Route: 042
     Dates: start: 20180322, end: 20180331
  2. SUFENTANIL [Suspect]
     Active Substance: SUFENTANIL
     Indication: SEDATION
     Dosage: 30 UG, UNK (EVERY HOUR)
     Route: 042
     Dates: start: 20180322, end: 20180331
  3. PYRIDOXINE [Concomitant]
     Active Substance: PYRIDOXINE
     Dosage: UNK
     Dates: start: 20180324, end: 20180328
  4. CORDARONE [Suspect]
     Active Substance: AMIODARONE HYDROCHLORIDE
     Indication: LEFT VENTRICULAR DYSFUNCTION
     Dosage: 200 MG, DAILY
     Route: 048
     Dates: start: 20180322, end: 20180329
  5. KETAMINE HCL [Suspect]
     Active Substance: KETAMINE HYDROCHLORIDE
     Indication: SEDATION
     Dosage: 300 MG, UNK (EVERY HOUR)
     Route: 042
     Dates: start: 20180322, end: 20180329
  6. ERYTHROCINE [Suspect]
     Active Substance: ERYTHROMYCIN
     Dosage: 100 MG, 3X/DAY (EVERY 8 HOURS)
     Route: 042
     Dates: start: 20180327, end: 20180329
  7. ACETYLCYSTEINE. [Suspect]
     Active Substance: ACETYLCYSTEINE
     Dosage: UNK
     Route: 042
     Dates: start: 20180326, end: 20180329
  8. PANTOPRAZOLE SODIUM. [Suspect]
     Active Substance: PANTOPRAZOLE SODIUM
     Indication: STRESS ULCER
     Dosage: 40 MG, DAILY
     Route: 042
     Dates: start: 20180322, end: 20180329
  9. NIMBEX [Suspect]
     Active Substance: CISATRACURIUM BESYLATE
     Indication: SEDATION
     Dosage: 20 MG, UNK (EVERY HOUR)
     Route: 042
     Dates: start: 20180326, end: 20180328
  10. NORADRENALINE [Suspect]
     Active Substance: NOREPINEPHRINE
     Indication: CARDIOGENIC SHOCK
     Dosage: UNK
     Route: 042
     Dates: start: 20180322, end: 20180330
  11. THIAMINE. [Concomitant]
     Active Substance: THIAMINE
     Dosage: UNK
     Dates: start: 20180324, end: 20180328
  12. HYDROCORTISONE. [Suspect]
     Active Substance: HYDROCORTISONE
     Indication: ADRENAL INSUFFICIENCY
     Dosage: 200 MG, DAILY
     Route: 042
     Dates: start: 20180322, end: 20180329
  13. FLUCORTAC [Suspect]
     Active Substance: FLUDROCORTISONE ACETATE
     Indication: ADRENAL INSUFFICIENCY
     Dosage: 1 DF, DAILY
     Route: 048
     Dates: start: 20180323, end: 20180328
  14. OFLOXACIN. [Suspect]
     Active Substance: OFLOXACIN
     Dosage: 200 MG, 2X/DAY (EVERY 12 HOURS)
     Route: 042
     Dates: start: 20180322, end: 20180329
  15. ROVAMYCINE [Concomitant]
     Active Substance: SPIRAMYCIN
     Dosage: UNK
     Dates: start: 20180322, end: 20180401
  16. HEPARIN [Concomitant]
     Active Substance: HEPARIN SODIUM
     Dosage: UNK
     Dates: start: 20180322

REACTIONS (1)
  - Hepatitis [Recovering/Resolving]

NARRATIVE: CASE EVENT DATE: 20180327
